FAERS Safety Report 14897011 (Version 3)
Quarter: 2023Q4

REPORT INFORMATION
  Report Type: Spontaneous
  Country: DE (occurrence: DE)
  Receive Date: 20180515
  Receipt Date: 20231023
  Transmission Date: 20240110
  Serious: Yes (Other)
  Sender: FDA-Public Use
  Company Number: DE-NOVPHSZ-PHHY2018DE060097

PATIENT
  Age: 53 Year
  Sex: Female

DRUGS (8)
  1. DULOXETINE HYDROCHLORIDE [Suspect]
     Active Substance: DULOXETINE HYDROCHLORIDE
     Indication: Neuralgia
     Dosage: UNK UNK, UNKNOWN
     Route: 065
  2. DULOXETINE HYDROCHLORIDE [Suspect]
     Active Substance: DULOXETINE HYDROCHLORIDE
     Indication: Radiculopathy
  3. NALOXONE [Suspect]
     Active Substance: NALOXONE
     Indication: Neuralgia
     Dosage: UNK UNK, UNKNOWN
     Route: 065
  4. NALOXONE [Suspect]
     Active Substance: NALOXONE
     Indication: Radiculopathy
  5. TILIDINE [Suspect]
     Active Substance: TILIDINE
     Indication: Neuralgia
     Dosage: UNK UNK, UNKNOWN
     Route: 065
  6. TAPENTADOL [Suspect]
     Active Substance: TAPENTADOL
     Indication: Neuralgia
     Dosage: 300 MG, UNKNOWN
     Route: 065
  7. TAPENTADOL [Suspect]
     Active Substance: TAPENTADOL
     Indication: Radiculopathy
  8. LIDOCAINE [Suspect]
     Active Substance: LIDOCAINE
     Indication: Radiculopathy
     Dosage: UNK, UNKNOWN
     Route: 061

REACTIONS (2)
  - Cognitive disorder [Unknown]
  - Product use in unapproved indication [Unknown]
